FAERS Safety Report 19004093 (Version 1)
Quarter: 2021Q1

REPORT INFORMATION
  Report Type: Spontaneous
  Country: SE (occurrence: SE)
  Receive Date: 20210312
  Receipt Date: 20210312
  Transmission Date: 20210420
  Serious: Yes (Hospitalization)
  Sender: FDA-Public Use
  Company Number: NVSC2021SE051020

PATIENT
  Age: 29 Year
  Sex: Female

DRUGS (4)
  1. LERGIGAN (PROMETHAZINE HYDROCHLORIDE) [Suspect]
     Active Substance: PROMETHAZINE HYDROCHLORIDE
     Indication: PRODUCT USED FOR UNKNOWN INDICATION
     Dosage: UNK LAST DOSE RECEIVED ON 09 FEB 2021
     Route: 065
     Dates: start: 20210209
  2. OLANZAPINE. [Suspect]
     Active Substance: OLANZAPINE
     Indication: PRODUCT USED FOR UNKNOWN INDICATION
     Dosage: 15 MG, 3 ST OLANZAPIN ? 5 MG (LAST DOSE RECEIVED ON 09 FEB 2021)
     Route: 065
     Dates: start: 20210209
  3. THERALEN [Suspect]
     Active Substance: TRIMEPRAZINE
     Indication: PRODUCT USED FOR UNKNOWN INDICATION
     Dosage: UNK LAST DOSE RECEIVED ON 09 FEB 2021
     Route: 065
     Dates: start: 20210209
  4. QUETIAPINE. [Suspect]
     Active Substance: QUETIAPINE
     Indication: PRODUCT USED FOR UNKNOWN INDICATION
     Dosage: UNK (LAST DOSE RECEIVED ON 09 FEB 2021)
     Route: 065
     Dates: start: 20210209

REACTIONS (4)
  - Toxicity to various agents [Unknown]
  - Suicidal ideation [Unknown]
  - Agitation [Unknown]
  - Intentional overdose [Unknown]

NARRATIVE: CASE EVENT DATE: 20210209
